FAERS Safety Report 15383768 (Version 1)
Quarter: 2018Q3

REPORT INFORMATION
  Report Type: Spontaneous
  Country: US (occurrence: US)
  Receive Date: 20180913
  Receipt Date: 20180913
  Transmission Date: 20181010
  Serious: No
  Sender: FDA-Public Use
  Company Number: US-CELGENEUS-USA-20180900527

PATIENT
  Sex: Male

DRUGS (5)
  1. DARATUMUMAB [Concomitant]
     Active Substance: DARATUMUMAB
     Indication: PLASMA CELL MYELOMA
     Dosage: EVERY WEEK FOR 9 WEEKS BEFORE TRANSITIONING TO EVERY OTHER WEEK FOR 9 WEEKS.CURRENTLY UP TO ONCE A M
     Route: 065
  2. POMALYST [Suspect]
     Active Substance: POMALIDOMIDE
     Dosage: 2 MILLIGRAM
     Route: 048
     Dates: start: 201803
  3. POMALYST [Suspect]
     Active Substance: POMALIDOMIDE
     Indication: PLASMA CELL MYELOMA
     Dosage: 3 MILLIGRAM
     Route: 048
     Dates: start: 201802
  4. POMALYST [Suspect]
     Active Substance: POMALIDOMIDE
     Dosage: EVERY WEEK FOR 9 WEEKS BEFORE TRANSITIONING TO EVERY OTHER WEEK FOR 9 WEEKS.CURRENTLY UP TO ONCE A M
     Route: 048
  5. DEXAMETHASONE. [Concomitant]
     Active Substance: DEXAMETHASONE
     Indication: PLASMA CELL MYELOMA
     Route: 065

REACTIONS (2)
  - Drug effect decreased [Unknown]
  - Throat irritation [Unknown]

NARRATIVE: CASE EVENT DATE: 2018
